FAERS Safety Report 6739964-X (Version None)
Quarter: 2010Q2

REPORT INFORMATION
  Report Type: 
  Country: None (occurrence: None)
  Receive Date: 20100521
  Receipt Date: 20100512
  Transmission Date: 20101027
  Serious: Yes (Hospitalization)
  Sender: FDA-Public Use
  Company Number: 2010JP001676

PATIENT
  Sex: Male
  Weight: 85.6 kg

DRUGS (8)
  1. PROGRAF [Suspect]
     Indication: COLITIS ULCERATIVE
     Dosage: 2 MG, BID, ORAL
     Route: 048
     Dates: start: 20091220
  2. FAMOTIDINE [Concomitant]
  3. MIYA BM (CLOSTRIDIUM BUTYRICUM) [Concomitant]
  4. PENTASA [Concomitant]
  5. TANNALBIN (ALBUMIN TANNATE) [Concomitant]
  6. ADSORBIN (ALUMINIUM SILICATE) [Concomitant]
  7. MAGNESIUM OXIDE (MAGNESIUM OXIDE) [Concomitant]
  8. DENOSINE (GANCIVLOVIR) [Concomitant]

REACTIONS (1)
  - LARGE INTESTINAL STRICTURE [None]
